FAERS Safety Report 17809276 (Version 1)
Quarter: 2020Q2

REPORT INFORMATION
  Report Type: Report from Study
  Country: CO (occurrence: CO)
  Receive Date: 20200520
  Receipt Date: 20200520
  Transmission Date: 20200714
  Serious: Yes (Hospitalization, Other)
  Sender: FDA-Public Use
  Company Number: CO-ASTELLAS-2020US017044

PATIENT
  Age: 37 Year
  Sex: Male
  Weight: 57 kg

DRUGS (2)
  1. MYCOPHENOLATE [Concomitant]
     Active Substance: MYCOPHENOLIC ACID
     Indication: RENAL TRANSPLANT
     Dosage: 2 DF, TWICE DAILY (2 CAPSULES OF 360MG IN THE MORNING AND 2 CAPSULES OF 360MG IN IN AFTERNOON)
     Dates: start: 20110702, end: 20200202
  2. TACROLIMUS. [Suspect]
     Active Substance: TACROLIMUS
     Indication: RENAL TRANSPLANT
     Dosage: 8 MG, ONCE DAILY (1 CAPSULE OF 5 MG AND 3 OF 1 MG)
     Route: 048
     Dates: start: 20190410, end: 20200220

REACTIONS (1)
  - Renal transplant failure [Unknown]

NARRATIVE: CASE EVENT DATE: 20200110
